FAERS Safety Report 4673076-4 (Version None)
Quarter: 2005Q2

REPORT INFORMATION
  Report Type: 
  Country: None (occurrence: None)
  Receive Date: 20050523
  Receipt Date: 20050513
  Transmission Date: 20051028
  Serious: Yes (Other)
  Sender: FDA-Public Use
  Company Number: 2005-05-0653

PATIENT
  Age: 78 Year
  Sex: Male
  Weight: 87 kg

DRUGS (10)
  1. ASMANEX TWISTHALER [Suspect]
     Indication: ASTHMA
     Dosage: 400MCG/QD INHALATION
     Dates: start: 20050424, end: 20050424
  2. ATENOLOL [Concomitant]
  3. OMEPRAZOLE [Concomitant]
  4. FRUSEMIDE [Concomitant]
  5. MAXIDEX [Concomitant]
  6. DILTIAZEM [Concomitant]
  7. TIMOPTIC [Concomitant]
  8. FLUTICASONE PROPIONATE [Concomitant]
  9. FLUCLOXACILLIN [Concomitant]
  10. SALBUTAMOL (ALBUTEROL) [Concomitant]

REACTIONS (2)
  - ANGINA PECTORIS [None]
  - NAUSEA [None]
